FAERS Safety Report 16304402 (Version 1)
Quarter: 2019Q2

REPORT INFORMATION
  Report Type: Report from Study
  Country: US (occurrence: US)
  Receive Date: 20190513
  Receipt Date: 20190513
  Transmission Date: 20190711
  Serious: Yes (Hospitalization, Other)
  Sender: FDA-Public Use
  Company Number: US-BAYER-2019-090717

PATIENT
  Age: 65 Year
  Sex: Female

DRUGS (5)
  1. VITRAKVI [Suspect]
     Active Substance: LAROTRECTINIB
     Indication: GALLBLADDER CANCER
     Dosage: 100 MG, BID
     Route: 048
     Dates: start: 20190427, end: 20190502
  2. TRAMADOL HCL [Concomitant]
     Active Substance: TRAMADOL HYDROCHLORIDE
  3. HYDROCODONE BITARTRATE. [Concomitant]
     Active Substance: HYDROCODONE BITARTRATE
  4. DIAZEPAM. [Concomitant]
     Active Substance: DIAZEPAM
  5. ATIVAN [Concomitant]
     Active Substance: LORAZEPAM

REACTIONS (7)
  - Gallbladder cancer [None]
  - Upper limb fracture [None]
  - Troponin increased [None]
  - Transaminases increased [None]
  - Hepatic encephalopathy [None]
  - Confusional state [None]
  - Respiratory failure [None]

NARRATIVE: CASE EVENT DATE: 20190427
